FAERS Safety Report 5857833-4 (Version None)
Quarter: 2008Q3

REPORT INFORMATION
  Report Type: 
  Country: None (occurrence: None)
  Receive Date: 20080822
  Receipt Date: 20080808
  Transmission Date: 20090109
  Serious: Yes (Hospitalization)
  Sender: FDA-Public Use
  Company Number: 2008PV000061

PATIENT
  Age: 44 Year
  Sex: Male
  Weight: 67 kg

DRUGS (8)
  1. DEPOCYT [Suspect]
     Indication: METASTASES TO MENINGES
     Dosage: 50 MG;INTH
     Route: 037
     Dates: start: 20080428, end: 20080725
  2. DOXORUBICIN HCL [Suspect]
     Dosage: 108 MG; QD; IV
     Route: 042
     Dates: start: 20080608, end: 20080612
  3. CYCLOPHOSPHAMIDE [Suspect]
     Dosage: 500 MG; QD; IV
     Route: 042
     Dates: start: 20080726, end: 20080727
  4. METHOTREXATE [Suspect]
     Dosage: 5400 MG; QD; IV
     Route: 042
     Dates: start: 20080426, end: 20080726
  5. ONCOVIN [Suspect]
     Dosage: 2 MG; QD
     Dates: start: 20080629, end: 20080703
  6. RITUXIMAB (RITUXIMAB) [Suspect]
     Dosage: 675 MG; QD; IV
     Route: 042
     Dates: start: 20080425, end: 20080725
  7. SOLU-MEDROL [Concomitant]
  8. LEUCOVORIN CALCIUM [Concomitant]

REACTIONS (3)
  - DYSPHAGIA [None]
  - MUCOSAL INFLAMMATION [None]
  - NEUTROPENIA [None]
